FAERS Safety Report 18235429 (Version 1)
Quarter: 2020Q3

REPORT INFORMATION
  Report Type: Spontaneous
  Country: GB (occurrence: GB)
  Receive Date: 20200905
  Receipt Date: 20200905
  Transmission Date: 20201103
  Serious: Yes (Life-Threatening, Other)
  Sender: FDA-Public Use
  Company Number: GB-TEVA-2020-GB-1824399

PATIENT
  Age: 83 Year
  Sex: Female
  Weight: 71 kg

DRUGS (8)
  1. SULFASALAZINE. [Concomitant]
     Active Substance: SULFASALAZINE
  2. GLICLAZIDE [Concomitant]
     Active Substance: GLICLAZIDE
  3. FERROUS SULFATE. [Concomitant]
     Active Substance: FERROUS SULFATE
  4. METFORMIN [Concomitant]
     Active Substance: METFORMIN HYDROCHLORIDE
  5. METHOTREXATE. [Concomitant]
     Active Substance: METHOTREXATE
  6. OMEPRAZOLE. [Concomitant]
     Active Substance: OMEPRAZOLE
  7. FOLIC ACID. [Concomitant]
     Active Substance: FOLIC ACID
  8. RISEDRONATE SODIUM. [Suspect]
     Active Substance: RISEDRONATE SODIUM
     Indication: OSTEOPOROSIS
     Dosage: 35 MG
     Route: 048
     Dates: start: 20170201, end: 20190514

REACTIONS (5)
  - Deformity [Unknown]
  - Osteonecrosis of jaw [Recovered/Resolved with Sequelae]
  - Skin lesion [Recovered/Resolved]
  - Mouth haemorrhage [Unknown]
  - Abnormal loss of weight [Unknown]

NARRATIVE: CASE EVENT DATE: 20180306
